FAERS Safety Report 6084787-0 (Version None)
Quarter: 2009Q1

REPORT INFORMATION
  Report Type: 
  Country: None (occurrence: None)
  Receive Date: 20090217
  Receipt Date: 20090204
  Transmission Date: 20090719
  Serious: Yes (Other)
  Sender: FDA-Public Use
  Company Number: 172066

PATIENT
  Age: 56 Year
  Weight: 65 kg

DRUGS (1)
  1. PACLITAXEL [Suspect]
     Indication: BREAST CANCER
     Dosage: 291 MG; INTRAVENOUS
     Route: 042
     Dates: start: 20081230, end: 20090126

REACTIONS (4)
  - BACK PAIN [None]
  - CHEST PAIN [None]
  - COUGH [None]
  - FLUSHING [None]
